FAERS Safety Report 21834767 (Version 1)
Quarter: 2023Q1

REPORT INFORMATION
  Report Type: Spontaneous
  Country: US (occurrence: None)
  Receive Date: 20230108
  Receipt Date: 20230108
  Transmission Date: 20230417
  Serious: No
  Sender: FDA-Public Use
  Company Number: US-ROCHE-3138497

PATIENT

DRUGS (2)
  1. HEMLIBRA [Suspect]
     Active Substance: EMICIZUMAB-KXWH
     Indication: Product used for unknown indication
     Dosage: 2.33 ML (349.5 MG)
     Route: 058
  2. ELOCTATE [Concomitant]
     Active Substance: EFMOROCTOCOG ALFA
     Indication: Prophylaxis
     Dosage: 5850 UNITS
     Route: 042

REACTIONS (1)
  - Haemorrhage [Not Recovered/Not Resolved]
